FAERS Safety Report 13768202 (Version 1)
Quarter: 2017Q3

REPORT INFORMATION
  Report Type: Spontaneous
  Country: US (occurrence: US)
  Receive Date: 20170719
  Receipt Date: 20170719
  Transmission Date: 20171127
  Serious: Yes (Other)
  Sender: FDA-Public Use
  Company Number: US-TARO PHARMACEUTICALS USA.,INC-2017SUN00255

PATIENT
  Age: 26 Year
  Sex: Male

DRUGS (6)
  1. BUPROPION. [Interacting]
     Active Substance: BUPROPION
     Indication: BIPOLAR DISORDER
     Route: 065
  2. LUMACAFTOR-IVACAFTOR [Interacting]
     Active Substance: IVACAFTOR\LUMACAFTOR
     Indication: CYSTIC FIBROSIS
     Dosage: 400/250 MG, EVERY 12 HOURS
     Route: 065
  3. ESCITALOPRAM [Suspect]
     Active Substance: ESCITALOPRAM OXALATE
     Indication: BIPOLAR DISORDER
     Route: 065
  4. OLANZAPINE. [Interacting]
     Active Substance: OLANZAPINE
     Indication: BIPOLAR DISORDER
     Route: 065
  5. TRAZODONE [Interacting]
     Active Substance: TRAZODONE HYDROCHLORIDE
     Indication: BIPOLAR DISORDER
     Route: 065
  6. LORAZEPAM. [Interacting]
     Active Substance: LORAZEPAM
     Indication: BIPOLAR DISORDER
     Route: 065

REACTIONS (3)
  - Drug interaction [Recovered/Resolved]
  - Drug effect decreased [Recovered/Resolved]
  - Depression [Recovered/Resolved]
